FAERS Safety Report 8128025-3 (Version None)
Quarter: 2012Q1

REPORT INFORMATION
  Report Type: 
  Country: None (occurrence: None)
  Receive Date: 20120210
  Receipt Date: 20120202
  Transmission Date: 20120608
  Serious: Yes (Other)
  Sender: FDA-Public Use
  Company Number: FR-JNJFOC-20111006865

PATIENT
  Age: 40 Year
  Sex: Female

DRUGS (1)
  1. ORTHO EVRA [Suspect]
     Indication: CONTRACEPTION
     Dosage: SUMMER
     Route: 062
     Dates: start: 20110101

REACTIONS (8)
  - HIATUS HERNIA [None]
  - HYPOTENSION [None]
  - VISUAL IMPAIRMENT [None]
  - VERTIGO [None]
  - INTENTIONAL DRUG MISUSE [None]
  - CONSTIPATION [None]
  - ACNE [None]
  - FUNGAL INFECTION [None]
